FAERS Safety Report 4663260-8 (Version None)
Quarter: 2005Q2

REPORT INFORMATION
  Report Type: 
  Country: None (occurrence: None)
  Receive Date: 20050513
  Receipt Date: 20050504
  Transmission Date: 20051028
  Serious: Yes (Other)
  Sender: FDA-Public Use
  Company Number: 2005-02-1365

PATIENT
  Age: 62 Year
  Sex: Male
  Weight: 70 kg

DRUGS (2)
  1. CELESTONE SOLUSPAN [Suspect]
     Indication: OSTEOARTHRITIS
     Dosage: INTRAMUSCULAR
     Route: 030
     Dates: start: 20041212, end: 20041227
  2. OMEPRAZOLE [Concomitant]

REACTIONS (3)
  - DRUG INTOLERANCE [None]
  - ERECTILE DYSFUNCTION [None]
  - LIBIDO DECREASED [None]
